FAERS Safety Report 13189736 (Version 1)
Quarter: 2017Q1

REPORT INFORMATION
  Report Type: Spontaneous
  Country: US (occurrence: US)
  Receive Date: 20170206
  Receipt Date: 20170206
  Transmission Date: 20170428
  Serious: Yes (Other)
  Sender: FDA-Public Use
  Company Number: US-TEVA-736722USA

PATIENT
  Age: 74 Year
  Sex: Male
  Weight: 84 kg

DRUGS (2)
  1. PROPOFOL. [Suspect]
     Active Substance: PROPOFOL
     Indication: ANAESTHESIA
     Route: 065
     Dates: start: 20160909, end: 20160909
  2. PROPOFOL. [Suspect]
     Active Substance: PROPOFOL
     Indication: PROSTATIC OPERATION

REACTIONS (6)
  - Gait disturbance [Unknown]
  - Movement disorder [Unknown]
  - Abasia [Unknown]
  - Walking aid user [Unknown]
  - Hypoaesthesia [Not Recovered/Not Resolved]
  - Balance disorder [Unknown]

NARRATIVE: CASE EVENT DATE: 20160923
